FAERS Safety Report 23138551 (Version 1)
Quarter: 2023Q4

REPORT INFORMATION
  Report Type: Spontaneous
  Country: IT (occurrence: IT)
  Receive Date: 20231102
  Receipt Date: 20231102
  Transmission Date: 20240110
  Serious: Yes (Other)
  Sender: FDA-Public Use
  Company Number: None

PATIENT
  Age: 18 Year
  Sex: Male

DRUGS (1)
  1. FINASTERIDE [Suspect]
     Active Substance: FINASTERIDE
     Indication: Alopecia
     Dosage: DRUG ADMINISTRATION 3+ YEARS / 1-3 YEARS
     Route: 065

REACTIONS (5)
  - Erectile dysfunction [Unknown]
  - Impaired quality of life [Unknown]
  - Memory impairment [Unknown]
  - Disturbance in attention [Unknown]
  - Product communication issue [Unknown]
